FAERS Safety Report 9685307 (Version 1)
Quarter: 2013Q4

REPORT INFORMATION
  Report Type: Spontaneous
  Country: US (occurrence: None)
  Receive Date: 20131112
  Receipt Date: 20131112
  Transmission Date: 20140711
  Serious: No
  Sender: FDA-Public Use
  Company Number: None

PATIENT
  Age: 76 Year
  Sex: Female
  Weight: 63.5 kg

DRUGS (1)
  1. CLOPIDIGREL [Suspect]
     Dosage: 75 MG  1 DAILY?JAN. OR FEB. 2013 - APRIL, 2013

REACTIONS (6)
  - Local swelling [None]
  - Pain [None]
  - Joint swelling [None]
  - Chemical injury [None]
  - Product substitution issue [None]
  - Contraindication to medical treatment [None]
